FAERS Safety Report 7517382-4 (Version None)
Quarter: 2011Q2

REPORT INFORMATION
  Report Type: 
  Country: None (occurrence: None)
  Receive Date: 20110601
  Receipt Date: 20100218
  Transmission Date: 20111010
  Serious: No
  Sender: FDA-Public Use
  Company Number: US-BAYER-201014813NA

PATIENT
  Age: 72 Year
  Sex: Female
  Weight: 45.455 kg

DRUGS (1)
  1. AVELOX [Suspect]
     Indication: LUNG DISORDER
     Dosage: UNK
     Dates: start: 20100205, end: 20100215

REACTIONS (3)
  - PAIN IN EXTREMITY [None]
  - MUSCULAR WEAKNESS [None]
  - DIZZINESS [None]
